FAERS Safety Report 9851252 (Version 1)
Quarter: 2014Q1

REPORT INFORMATION
  Report Type: Spontaneous
  Country: IL (occurrence: IL)
  Receive Date: 20140128
  Receipt Date: 20140128
  Transmission Date: 20141002
  Serious: Yes (Hospitalization)
  Sender: FDA-Public Use
  Company Number: IL-ABBVIE-14P-082-1192641-00

PATIENT
  Sex: Male

DRUGS (8)
  1. HUMIRA [Suspect]
     Indication: PSORIATIC ARTHROPATHY
  2. LANTUS [Concomitant]
     Route: 058
  3. ALLORIL [Concomitant]
     Route: 048
  4. CADEX [Concomitant]
     Route: 048
  5. VASODIP [Concomitant]
     Route: 048
  6. LOSARDEX [Concomitant]
     Route: 048
  7. LOPRESOR [Concomitant]
     Route: 048
  8. CIPRALEX [Concomitant]
     Route: 048

REACTIONS (4)
  - Inflammation [Recovering/Resolving]
  - Pharyngeal disorder [Unknown]
  - Osteomyelitis [Unknown]
  - Otitis media chronic [Unknown]
